FAERS Safety Report 5992124-2 (Version None)
Quarter: 2008Q4

REPORT INFORMATION
  Report Type: 
  Country: None (occurrence: None)
  Receive Date: 20081211
  Receipt Date: 20081205
  Transmission Date: 20090506
  Serious: Yes (Hospitalization)
  Sender: FDA-Public Use
  Company Number: US-MERCK-0812USA01773

PATIENT
  Age: 66 Year
  Sex: Female

DRUGS (2)
  1. FOSAMAX PLUS D [Suspect]
     Indication: OSTEOPENIA
     Route: 048
     Dates: start: 20010101, end: 20080902
  2. PROTONIX [Concomitant]
     Route: 065

REACTIONS (3)
  - FEMUR FRACTURE [None]
  - FOOT FRACTURE [None]
  - WALKING DISABILITY [None]
